FAERS Safety Report 8152091 (Version 2)
Quarter: 2013Q2

REPORT INFORMATION
  Report Type: Spontaneous
  Country: US (occurrence: US)
  Receive Date: 20110922
  Receipt Date: 20130410
  Transmission Date: 20140414
  Serious: Yes (Other)
  Sender: FDA-Public Use
  Company Number: US-ASTRAZENECA-2011SE12559

PATIENT
  Sex: Female

DRUGS (9)
  1. SEROQUEL [Suspect]
     Route: 048
     Dates: start: 1998
  2. SEROQUEL [Suspect]
     Route: 048
     Dates: end: 1998
  3. DEPAKOTE [Concomitant]
     Dates: start: 19980210
  4. DEPAKOTE [Concomitant]
     Dates: start: 1998
  5. NEURONTIN [Concomitant]
     Dates: end: 19980210
  6. ZYPREXA [Concomitant]
     Dosage: 5 TO 10 MG QHS
     Dates: start: 1998
  7. TEGRETOL [Concomitant]
     Dates: start: 1998
  8. RISPERDAL [Concomitant]
     Dates: start: 1998
  9. RISPERDAL [Concomitant]
     Dates: end: 1998

REACTIONS (3)
  - Pancreatitis [Unknown]
  - Diabetic coma [Unknown]
  - Type 2 diabetes mellitus [Unknown]
